FAERS Safety Report 9852939 (Version 1)
Quarter: 2014Q1

REPORT INFORMATION
  Report Type: Report from Study
  Country: US (occurrence: US)
  Receive Date: 20140129
  Receipt Date: 20140129
  Transmission Date: 20141002
  Serious: Yes (Hospitalization)
  Sender: FDA-Public Use
  Company Number: US-JNJFOC-20140115196

PATIENT
  Sex: Female
  Weight: 68.04 kg

DRUGS (14)
  1. SIMPONI ARIA [Suspect]
     Indication: RHEUMATOID ARTHRITIS
     Route: 042
     Dates: start: 20131015
  2. SIMPONI ARIA [Suspect]
     Indication: RHEUMATOID ARTHRITIS
     Route: 042
     Dates: start: 20131105
  3. SIMPONI ARIA [Suspect]
     Indication: RHEUMATOID ARTHRITIS
     Route: 042
     Dates: start: 20131205, end: 20140121
  4. METHOTREXATE [Concomitant]
     Indication: RHEUMATOID ARTHRITIS
     Route: 048
     Dates: start: 1998
  5. LEUCOVORIN [Concomitant]
     Indication: RHEUMATOID ARTHRITIS
     Route: 048
     Dates: start: 1998
  6. CALCIUM [Concomitant]
     Route: 048
  7. ESTRADIOL [Concomitant]
     Indication: MENOPAUSAL DISORDER
     Route: 065
  8. ATORVASTATIN [Concomitant]
     Indication: BLOOD CHOLESTEROL INCREASED
     Route: 048
  9. METOPROLOL [Concomitant]
     Indication: HYPERTENSION
     Route: 048
     Dates: start: 2010
  10. LIDOCAINE [Concomitant]
     Indication: PAIN
     Route: 065
     Dates: start: 2011
  11. METHOCARBAMOL [Concomitant]
     Indication: MUSCLE SPASMS
     Route: 048
     Dates: start: 201210
  12. LYRICA [Concomitant]
     Indication: PAIN IN EXTREMITY
     Route: 048
  13. CLOPIDOGREL [Concomitant]
     Indication: STENT PLACEMENT
     Route: 048
     Dates: start: 2012
  14. ASPIRIN [Concomitant]
     Route: 048

REACTIONS (6)
  - Night sweats [Not Recovered/Not Resolved]
  - Pain in extremity [Recovering/Resolving]
  - Musculoskeletal pain [Unknown]
  - Nausea [Unknown]
  - Dizziness [Unknown]
  - Increased tendency to bruise [Not Recovered/Not Resolved]
